FAERS Safety Report 25298211 (Version 1)
Quarter: 2025Q2

REPORT INFORMATION
  Report Type: Report from Study
  Country: CA (occurrence: CA)
  Receive Date: 20250512
  Receipt Date: 20250512
  Transmission Date: 20250717
  Serious: Yes (Other)
  Sender: Alvotech
  Company Number: CA-JAMP PHARMA CORPORATION-2022-JAM-CA-00387

PATIENT
  Age: 21 Year
  Sex: Female

DRUGS (1)
  1. SIMLANDI [Suspect]
     Active Substance: ADALIMUMAB-RYVK
     Indication: Colitis ulcerative
     Dosage: 40 MG, EVERY 2 WEEKS
     Route: 058
     Dates: start: 20220706

REACTIONS (4)
  - Haematochezia [Recovering/Resolving]
  - Peripheral swelling [Unknown]
  - Constipation [Unknown]
  - Product distribution issue [Unknown]
